FAERS Safety Report 15438548 (Version 1)
Quarter: 2018Q3

REPORT INFORMATION
  Report Type: Spontaneous
  Country: IT (occurrence: IT)
  Receive Date: 20180928
  Receipt Date: 20180928
  Transmission Date: 20181010
  Serious: Yes (Other)
  Sender: FDA-Public Use
  Company Number: IT-009507513-1809ITA012184

PATIENT
  Age: 72 Year
  Sex: Male
  Weight: 78 kg

DRUGS (1)
  1. PEMBROLIZUMAB. [Suspect]
     Active Substance: PEMBROLIZUMAB
     Indication: LUNG CARCINOMA CELL TYPE UNSPECIFIED STAGE IV
     Dosage: 200 MG, UNK
     Route: 042
     Dates: start: 20180727, end: 20180817

REACTIONS (3)
  - Papule [Not Recovered/Not Resolved]
  - Rash generalised [Not Recovered/Not Resolved]
  - Rash erythematous [Not Recovered/Not Resolved]

NARRATIVE: CASE EVENT DATE: 20180831
